FAERS Safety Report 9903722 (Version 1)
Quarter: 2014Q1

REPORT INFORMATION
  Report Type: Spontaneous
  Country: US (occurrence: US)
  Receive Date: 20140217
  Receipt Date: 20140217
  Transmission Date: 20141002
  Serious: Yes (Death)
  Sender: FDA-Public Use
  Company Number: US-ROCHE-1351406

PATIENT
  Sex: Female

DRUGS (2)
  1. XELODA [Suspect]
     Indication: BREAST CANCER
     Route: 048
     Dates: start: 20140129
  2. NEUPOGEN [Concomitant]
     Indication: NEUTROPENIA
     Dosage: 480UG/0.8 ML
     Route: 058

REACTIONS (1)
  - Death [Fatal]
